FAERS Safety Report 4999865-4 (Version None)
Quarter: 2006Q2

REPORT INFORMATION
  Report Type: 
  Country: None (occurrence: None)
  Receive Date: 20060509
  Receipt Date: 20060421
  Transmission Date: 20061013
  Serious: Yes (Death, Hospitalization)
  Sender: FDA-Public Use
  Company Number: 224566

PATIENT
  Age: 58 Year
  Sex: Female
  Weight: 75 kg

DRUGS (13)
  1. BEVACIZUMAB (BEVACIZUMAB) PWDR + SOLVENT, INFUSION SOLN, 100 MG [Suspect]
     Indication: NON-SMALL CELL LUNG CANCER
     Dosage: Q3W, INTRAVENOUS
     Route: 042
     Dates: start: 20050919, end: 20051124
  2. CISPLATIN [Suspect]
     Indication: NON-SMALL CELL LUNG CANCER
     Dosage: 80 MG/M2, Q3W, INTRAVENOUS
     Route: 042
     Dates: start: 20050919, end: 20060125
  3. GEMCITABINE [Suspect]
     Indication: NON-SMALL CELL LUNG CANCER
     Dosage: 1250 MG/M2, INTRAVENOUS
     Route: 042
     Dates: start: 20050919, end: 20060201
  4. RABEPRAZOLE SODIUM [Concomitant]
  5. ATACAND [Concomitant]
  6. LOXEN (NICARDIPINE HYDROCHLORIDE) [Concomitant]
  7. INNOHEP [Concomitant]
  8. EMEND [Concomitant]
  9. VOGALENE (METOPIMAZINE) [Concomitant]
  10. BLOOD TRANSFUSION NOS (BLOOD, WHOLE) [Concomitant]
  11. ATENOLOL [Concomitant]
  12. ZONDAR (DIACEREIN) [Concomitant]
  13. OMEPRAZOLE [Concomitant]

REACTIONS (3)
  - ANAEMIA [None]
  - BLOOD PRESSURE DECREASED [None]
  - THROMBOSIS [None]
